FAERS Safety Report 4351332-7 (Version None)
Quarter: 2004Q2

REPORT INFORMATION
  Report Type: 
  Country: None (occurrence: None)
  Receive Date: 20040503
  Receipt Date: 20040420
  Transmission Date: 20050107
  Serious: Yes (Hospitalization)
  Sender: FDA-Public Use
  Company Number: FR-JNJFOC-20040404264

PATIENT
  Age: 93 Year
  Sex: Male

DRUGS (1)
  1. RISPERDAL [Suspect]
     Route: 049

REACTIONS (2)
  - EXTRAPYRAMIDAL DISORDER [None]
  - LUNG DISORDER [None]
